FAERS Safety Report 24768360 (Version 1)
Quarter: 2024Q4

REPORT INFORMATION
  Report Type: Spontaneous
  Country: JP (occurrence: JP)
  Receive Date: 20241223
  Receipt Date: 20241223
  Transmission Date: 20250114
  Serious: No
  Sender: ASTELLAS
  Company Number: JP-ASTELLAS-2024-AER-026339

PATIENT
  Age: 83 Year
  Sex: Male

DRUGS (4)
  1. VESICARE [Suspect]
     Active Substance: SOLIFENACIN SUCCINATE
     Indication: Urinary incontinence
     Dosage: AFTER BREAKFAST
     Route: 048
  2. VESICARE [Suspect]
     Active Substance: SOLIFENACIN SUCCINATE
     Indication: Road traffic accident
  3. VIBEGRON [Concomitant]
     Active Substance: VIBEGRON
     Indication: Urinary incontinence
     Route: 048
  4. VIBEGRON [Concomitant]
     Active Substance: VIBEGRON
     Indication: Road traffic accident

REACTIONS (2)
  - Urinary incontinence [Unknown]
  - Product use in unapproved indication [Unknown]
